FAERS Safety Report 13392701 (Version 1)
Quarter: 2017Q1

REPORT INFORMATION
  Report Type: Spontaneous
  Country: US (occurrence: US)
  Receive Date: 20170331
  Receipt Date: 20170331
  Transmission Date: 20170429
  Serious: No
  Sender: FDA-Public Use
  Company Number: US-MYLANLABS-2016M1053479

PATIENT
  Sex: Female

DRUGS (2)
  1. NORCO [Concomitant]
     Active Substance: ACETAMINOPHEN\HYDROCODONE BITARTRATE
     Indication: ARTHRALGIA
     Dosage: UNK
  2. FENTANYL TRANSDERMAL SYSTEM [Suspect]
     Active Substance: FENTANYL
     Indication: ARTHRALGIA
     Dosage: 12.5 ?G, QH, CHANGE Q72H
     Route: 062
     Dates: start: 2014

REACTIONS (2)
  - Gait disturbance [Recovered/Resolved]
  - Drug effect decreased [Not Recovered/Not Resolved]
